FAERS Safety Report 5208529-3 (Version None)
Quarter: 2007Q1

REPORT INFORMATION
  Report Type: 
  Country: None (occurrence: None)
  Receive Date: 20070115
  Receipt Date: 20070111
  Transmission Date: 20070707
  Serious: Yes (Hospitalization)
  Sender: FDA-Public Use
  Company Number: CA-BOEHRINGER INGELHEIM GMBH, GERMANY-2007-CN-00020CN

PATIENT
  Sex: Female

DRUGS (3)
  1. MICARDIS HCT [Suspect]
     Dates: start: 20060925
  2. NORVASC [Concomitant]
  3. LIPITOR [Concomitant]

REACTIONS (2)
  - PLEURISY VIRAL [None]
  - PNEUMONIA VIRAL [None]
